FAERS Safety Report 7131062-9 (Version None)
Quarter: 2010Q4

REPORT INFORMATION
  Report Type: 
  Country: None (occurrence: None)
  Receive Date: 20101201
  Receipt Date: 20101126
  Transmission Date: 20110411
  Serious: Yes (Other)
  Sender: FDA-Public Use
  Company Number: GB-PFIZER INC-2010158986

PATIENT
  Age: 54 Year
  Sex: Female

DRUGS (4)
  1. CHAMPIX [Suspect]
     Dosage: 0.5 MG, UNK
     Dates: start: 20100828
  2. CHAMPIX [Suspect]
     Dosage: 0.5 MG, 4X/DAY
     Dates: start: 20100915
  3. CHAMPIX [Suspect]
     Dosage: 1 MG, 2X/DAY
     Dates: start: 20100929, end: 20101110
  4. CITALOPRAM [Concomitant]
     Indication: DEPRESSION

REACTIONS (4)
  - DEPRESSED MOOD [None]
  - DISTURBANCE IN ATTENTION [None]
  - MEMORY IMPAIRMENT [None]
  - SUICIDAL IDEATION [None]
